FAERS Safety Report 7831525-4 (Version None)
Quarter: 2011Q4

REPORT INFORMATION
  Report Type: 
  Country: None (occurrence: None)
  Receive Date: 20111021
  Receipt Date: 20111013
  Transmission Date: 20120403
  Serious: Yes (Other)
  Sender: FDA-Public Use
  Company Number: PHHY2011FR91269

PATIENT

DRUGS (2)
  1. LIORESAL [Interacting]
     Indication: ALCOHOLISM
  2. DIAZEPAM [Suspect]
     Dosage: UNK UKN, UNK

REACTIONS (2)
  - CONFUSIONAL STATE [None]
  - DRUG INTERACTION [None]
